FAERS Safety Report 13138848 (Version 2)
Quarter: 2017Q1

REPORT INFORMATION
  Report Type: Spontaneous
  Country: US (occurrence: US)
  Receive Date: 20170123
  Receipt Date: 20170301
  Transmission Date: 20170428
  Serious: Yes (Hospitalization)
  Sender: FDA-Public Use
  Company Number: US-PFIZER INC-2017025203

PATIENT
  Age: 38 Year
  Sex: Male

DRUGS (1)
  1. VIAGRA [Suspect]
     Active Substance: SILDENAFIL CITRATE
     Dosage: 100 MG, DAILY
     Dates: start: 2016

REACTIONS (3)
  - Prostatomegaly [Not Recovered/Not Resolved]
  - Road traffic accident [Not Recovered/Not Resolved]
  - Spinal fracture [Not Recovered/Not Resolved]
